FAERS Safety Report 12535610 (Version 1)
Quarter: 2016Q3

REPORT INFORMATION
  Report Type: Spontaneous
  Country: GB (occurrence: GB)
  Receive Date: 20160707
  Receipt Date: 20160707
  Transmission Date: 20161109
  Serious: Yes (Other)
  Sender: FDA-Public Use
  Company Number: GB-AUROBINDO-AUR-APL-2016-08386

PATIENT
  Sex: Male

DRUGS (25)
  1. PAROXETINE TABLET [Suspect]
     Active Substance: PAROXETINE
     Dosage: 30 MG, ONCE A DAY
     Route: 048
     Dates: start: 20051007, end: 20060908
  2. PAROXETINE TABLET [Suspect]
     Active Substance: PAROXETINE
     Dosage: UNK
     Route: 065
     Dates: start: 20050831, end: 20081118
  3. PAXIL [Suspect]
     Active Substance: PAROXETINE HYDROCHLORIDE
     Dosage: 20 MG, TWO TIMES A DAY
     Route: 048
     Dates: start: 20030521, end: 20121231
  4. SEROXAT [Suspect]
     Active Substance: PAROXETINE HYDROCHLORIDE
     Indication: DEPRESSION
     Dosage: UNK
     Dates: start: 20100915, end: 20150420
  5. CIPRALEX [Concomitant]
     Active Substance: ESCITALOPRAM OXALATE
     Indication: PRODUCT USED FOR UNKNOWN INDICATION
     Dosage: UNK
     Route: 065
     Dates: start: 20060223, end: 200607
  6. PYRIDOXINE [Concomitant]
     Active Substance: PYRIDOXINE
     Indication: PREMENSTRUAL SYNDROME
     Dosage: UNK
     Route: 065
     Dates: start: 20060120
  7. PAROXETINE TABLET [Suspect]
     Active Substance: PAROXETINE
     Dosage: 20 MG, TWO TIMES A DAY
     Route: 048
     Dates: start: 20030528, end: 20061201
  8. PAROXETINE TABLET [Suspect]
     Active Substance: PAROXETINE
     Dosage: 15 MG, ONCE A DAY
     Dates: start: 20150421
  9. FLUOXETINE [Concomitant]
     Active Substance: FLUOXETINE HYDROCHLORIDE
     Indication: PRODUCT USED FOR UNKNOWN INDICATION
     Dosage: UNK
     Route: 065
     Dates: start: 200806
  10. PAROXETINE TABLET [Suspect]
     Active Substance: PAROXETINE
     Dosage: 10 MG, UNK
     Route: 065
     Dates: start: 20150203, end: 20150420
  11. PAROXETINE TABLET [Suspect]
     Active Substance: PAROXETINE
     Dosage: 20 MG, ONCE A DAY
     Route: 065
     Dates: start: 1998, end: 20150405
  12. CIPRAMIL                           /00582603/ [Concomitant]
     Active Substance: CITALOPRAM HYDROBROMIDE
     Indication: PRODUCT USED FOR UNKNOWN INDICATION
     Dosage: UNK
     Route: 065
     Dates: start: 20060120, end: 2007
  13. DOSULEPIN HYDROCHLORIDE [Concomitant]
     Active Substance: DOTHIEPIN HYDROCHLORIDE
     Indication: PRODUCT USED FOR UNKNOWN INDICATION
     Dosage: UNK UNK, U
     Route: 065
  14. MIANSERIN [Concomitant]
     Active Substance: MIANSERIN
     Indication: PRODUCT USED FOR UNKNOWN INDICATION
     Dosage: UNK UNK, UNK
     Route: 065
  15. PAXIL [Suspect]
     Active Substance: PAROXETINE HYDROCHLORIDE
     Indication: DEPRESSION
     Dosage: UNK
     Route: 065
     Dates: start: 20030521
  16. FINASTERIDE. [Concomitant]
     Active Substance: FINASTERIDE
     Indication: ALOPECIA
     Dosage: UNK
     Route: 065
     Dates: start: 20070605
  17. FLUOXETINE [Concomitant]
     Active Substance: FLUOXETINE HYDROCHLORIDE
     Dosage: 20 MG, UNK
     Route: 065
     Dates: start: 19920206, end: 20060421
  18. TRAZODONE [Concomitant]
     Active Substance: TRAZODONE HYDROCHLORIDE
     Indication: POOR QUALITY SLEEP
     Dosage: 37.5 MG, UNK
     Route: 065
     Dates: start: 20050826
  19. ZOLPIDEM [Concomitant]
     Active Substance: ZOLPIDEM\ZOLPIDEM TARTRATE
     Indication: PRODUCT USED FOR UNKNOWN INDICATION
     Dosage: UNK
     Route: 065
  20. PAROXETINE TABLET [Suspect]
     Active Substance: PAROXETINE
     Indication: DEPRESSION
     Dosage: 15 MG, ONCE A DAY
     Route: 065
     Dates: start: 20060223
  21. PAROXETINE TABLET [Suspect]
     Active Substance: PAROXETINE
     Dosage: 30 MG, ONCE A DAY
     Route: 065
     Dates: start: 20040112, end: 20050602
  22. PAROXETINE. [Suspect]
     Active Substance: PAROXETINE
     Indication: DEPRESSION
     Dosage: UNK
     Route: 048
     Dates: start: 20070105, end: 20070605
  23. SEROXAT [Suspect]
     Active Substance: PAROXETINE HYDROCHLORIDE
     Indication: ANXIETY
     Dosage: 20 MG, TWO TIMES A DAY
     Route: 048
     Dates: start: 20030521, end: 20121231
  24. DIAZEPAM. [Concomitant]
     Active Substance: DIAZEPAM
     Indication: PRODUCT USED FOR UNKNOWN INDICATION
     Dosage: 2 MG, UNK
     Route: 065
     Dates: start: 20051007
  25. NICOTINE. [Concomitant]
     Active Substance: NICOTINE
     Indication: PRODUCT USED FOR UNKNOWN INDICATION
     Dosage: UNK
     Route: 065
     Dates: start: 200802

REACTIONS (32)
  - Loss of libido [Unknown]
  - Hyperhidrosis [Unknown]
  - Derealisation [Unknown]
  - Anhedonia [Unknown]
  - Fatigue [Recovered/Resolved]
  - Palpitations [Unknown]
  - Depressed mood [Unknown]
  - Frustration tolerance decreased [Unknown]
  - Thought insertion [Recovered/Resolved]
  - Condition aggravated [Unknown]
  - Suicidal ideation [Unknown]
  - Dizziness [Unknown]
  - Anxiety [Unknown]
  - Vitreous floaters [Unknown]
  - Memory impairment [Unknown]
  - Nightmare [Recovered/Resolved]
  - Balance disorder [Not Recovered/Not Resolved]
  - Aggression [Unknown]
  - Disturbance in attention [Not Recovered/Not Resolved]
  - Vertigo [Unknown]
  - Photosensitivity reaction [Unknown]
  - Confusional state [Unknown]
  - Tearfulness [Unknown]
  - Vision blurred [Unknown]
  - Apathy [Unknown]
  - Myalgia [Unknown]
  - Poor quality sleep [Unknown]
  - Rash pruritic [Unknown]
  - Drug withdrawal syndrome [Unknown]
  - Visual impairment [Not Recovered/Not Resolved]
  - Decreased appetite [Unknown]
  - Hypoacusis [Unknown]

NARRATIVE: CASE EVENT DATE: 20040212
